FAERS Safety Report 10495235 (Version 1)
Quarter: 2014Q4

REPORT INFORMATION
  Report Type: Spontaneous
  Country: US (occurrence: None)
  Receive Date: 20141001
  Receipt Date: 20141001
  Transmission Date: 20150528
  Serious: Yes (Other)
  Sender: FDA-Public Use
  Company Number: 2014JUB00141

PATIENT
  Age: 61 Year
  Sex: Female
  Weight: 73.5 kg

DRUGS (3)
  1. SYNTHROID [Concomitant]
     Active Substance: LEVOTHYROXINE SODIUM
  2. KLONOPIN [Concomitant]
     Active Substance: CLONAZEPAM
  3. LAMOTRIGINE. [Suspect]
     Active Substance: LAMOTRIGINE
     Indication: MOOD SWINGS
     Route: 048
     Dates: start: 2005

REACTIONS (2)
  - Blister [None]
  - Corneal dystrophy [None]

NARRATIVE: CASE EVENT DATE: 2009
